FAERS Safety Report 19435570 (Version 1)
Quarter: 2021Q2

REPORT INFORMATION
  Report Type: Spontaneous
  Country: US (occurrence: US)
  Receive Date: 20210618
  Receipt Date: 20210618
  Transmission Date: 20210717
  Serious: No
  Sender: FDA-Public Use
  Company Number: NVSC2021US130816

PATIENT

DRUGS (1)
  1. KESIMPTA [Suspect]
     Active Substance: OFATUMUMAB
     Indication: MULTIPLE SCLEROSIS
     Route: 065

REACTIONS (9)
  - Fatigue [Unknown]
  - Injection site warmth [Unknown]
  - Hypoaesthesia [Unknown]
  - Pain [Unknown]
  - Pruritus [Unknown]
  - Oral pain [Unknown]
  - Injection site coldness [Unknown]
  - Arthralgia [Unknown]
  - Rhinorrhoea [Unknown]
